FAERS Safety Report 18825501 (Version 1)
Quarter: 2021Q1

REPORT INFORMATION
  Report Type: Spontaneous
  Country: FR (occurrence: FR)
  Receive Date: 20210202
  Receipt Date: 20210202
  Transmission Date: 20210419
  Serious: Yes (Life-Threatening, Hospitalization)
  Sender: FDA-Public Use
  Company Number: FR-PFIZER INC-2021087940

PATIENT
  Age: 29 Year
  Sex: Male

DRUGS (4)
  1. VENLAFAXINE HCL [Suspect]
     Active Substance: VENLAFAXINE HYDROCHLORIDE
     Dosage: 1 UNK, SINGLE
     Route: 048
     Dates: start: 20210114, end: 20210114
  2. PARACETAMOL [Suspect]
     Active Substance: ACETAMINOPHEN
     Dosage: 1 UNK, SINGLE
     Route: 048
     Dates: start: 20210114, end: 20210114
  3. CYAMEMAZINE [Suspect]
     Active Substance: CYAMEMAZINE
     Dosage: 1 UNK, SINGLE
     Route: 048
     Dates: start: 20210114, end: 20210114
  4. DEPAKINE [VALPROIC ACID] [Suspect]
     Active Substance: VALPROIC ACID
     Dosage: 1 UNK, SINGLE
     Route: 048
     Dates: start: 20210114, end: 20210114

REACTIONS (5)
  - Mydriasis [Recovered/Resolved]
  - Altered state of consciousness [Recovered/Resolved]
  - Hyperlactacidaemia [Recovered/Resolved]
  - Hepatocellular injury [Unknown]
  - Poisoning deliberate [Recovered/Resolved]

NARRATIVE: CASE EVENT DATE: 20210114
